FAERS Safety Report 5050561-7 (Version None)
Quarter: 2006Q3

REPORT INFORMATION
  Report Type: 
  Country: None (occurrence: None)
  Receive Date: 20060707
  Receipt Date: 20060621
  Transmission Date: 20061208
  Serious: Yes (Hospitalization)
  Sender: FDA-Public Use
  Company Number: 221141

PATIENT
  Age: 65 Year
  Sex: Male

DRUGS (11)
  1. AVASTIN [Suspect]
     Indication: COLON CANCER
     Dosage: 470 MG, Q3W, INTRAVENOUS
     Route: 042
     Dates: start: 20050913, end: 20060626
  2. AVASTIN [Suspect]
  3. CAPECITABINE (CAPECITABINE) [Suspect]
     Indication: COLON CANCER
     Dosage: 1650 MG, BID, ORAL
     Route: 048
     Dates: start: 20050913, end: 20060626
  4. OXALIPLATIN (OXALIPLATIN) [Suspect]
     Indication: COLON CANCER
     Dosage: 130 MG, Q3W, INTRAVENOUS
     Route: 042
     Dates: start: 20050913, end: 20060626
  5. OXALIPLATIN (OXALIPLATIN) [Suspect]
     Dosage: 150 MG
  6. MAXOLON [Concomitant]
  7. PANADOL (ACETAMINOPHEN) [Concomitant]
  8. OMEPRAZOLE [Concomitant]
  9. QUINAPRIL [Concomitant]
  10. IRBESARTAN [Concomitant]
  11. AMLODIPINE BESYLATE [Concomitant]

REACTIONS (11)
  - BLOOD ALBUMIN INCREASED [None]
  - BLOOD BICARBONATE DECREASED [None]
  - BLOOD SODIUM DECREASED [None]
  - DEHYDRATION [None]
  - DIARRHOEA [None]
  - DIZZINESS [None]
  - DYSPNOEA [None]
  - NECK PAIN [None]
  - PAIN IN EXTREMITY [None]
  - PROTEIN TOTAL INCREASED [None]
  - RENAL FAILURE ACUTE [None]
